FAERS Safety Report 17237894 (Version 1)
Quarter: 2020Q1

REPORT INFORMATION
  Report Type: Spontaneous
  Country: NL (occurrence: DE)
  Receive Date: 20200106
  Receipt Date: 20200106
  Transmission Date: 20200409
  Serious: Yes (Other)
  Sender: FDA-Public Use
  Company Number: DE-FRESENIUS KABI-FK201910105

PATIENT
  Age: 59 Year
  Sex: Male
  Weight: 82 kg

DRUGS (12)
  1. CIPROFLOXACIN (MANUFACTURER UNKNOWN) [Suspect]
     Active Substance: CIPROFLOXACIN
     Indication: DYSURIA
     Route: 065
  2. LEVOFLOXACIN (MANUFACTURER UNKNOWN) [Suspect]
     Active Substance: LEVOFLOXACIN
     Indication: DYSURIA
     Route: 065
  3. CIPROFLOXACIN (MANUFACTURER UNKNOWN) [Suspect]
     Active Substance: CIPROFLOXACIN
     Indication: ABDOMINAL PAIN LOWER
     Route: 065
  4. MOXIFLOXACIN. [Suspect]
     Active Substance: MOXIFLOXACIN
     Indication: PRODUCT USED FOR UNKNOWN INDICATION
     Route: 048
     Dates: start: 20180408, end: 20180701
  5. LEVOFLOXACIN (MANUFACTURER UNKNOWN) [Suspect]
     Active Substance: LEVOFLOXACIN
     Indication: ABDOMINAL PAIN LOWER
     Route: 065
  6. CIPROFLOXACIN (MANUFACTURER UNKNOWN) [Suspect]
     Active Substance: CIPROFLOXACIN
     Indication: BACTERIAL INFECTION
     Route: 065
  7. CIPROFLOXACIN. [Suspect]
     Active Substance: CIPROFLOXACIN
     Indication: PROSTATE INFECTION
     Dosage: 10 DAYS / ONCE PER DAY
     Route: 048
     Dates: start: 20180518, end: 201805
  8. LEVOFLOXACIN. [Suspect]
     Active Substance: LEVOFLOXACIN
     Indication: BACTERIAL INFECTION
     Dosage: 10 DAYS / ONCE PER DAY
     Route: 048
     Dates: start: 20180408, end: 201804
  9. LEVOFLOXACIN (MANUFACTURER UNKNOWN) [Suspect]
     Active Substance: LEVOFLOXACIN
     Indication: PROSTATE INFECTION
     Route: 065
  10. CIPROFLOXACIN (MANUFACTURER UNKNOWN) [Suspect]
     Active Substance: CIPROFLOXACIN
     Indication: TESTIS DISCOMFORT
     Route: 065
  11. AMOXICILLIN SODIUM/CLAVULANATE POTASSIUM [Concomitant]
     Active Substance: AMOXICILLIN\CLAVULANATE POTASSIUM
     Indication: PRODUCT USED FOR UNKNOWN INDICATION
     Dosage: 10 DAYS, 1 PER DAY
     Route: 065
     Dates: start: 20180601, end: 201806
  12. LEVOFLOXACIN (MANUFACTURER UNKNOWN) [Suspect]
     Active Substance: LEVOFLOXACIN
     Indication: TESTIS DISCOMFORT
     Route: 065

REACTIONS (27)
  - Benign prostatic hyperplasia [Unknown]
  - Arthralgia [Recovering/Resolving]
  - Joint effusion [Unknown]
  - Pruritus genital [Unknown]
  - Abdominal pain lower [Unknown]
  - Musculoskeletal discomfort [Unknown]
  - Lacrimation increased [Not Recovered/Not Resolved]
  - Sexual dysfunction [Unknown]
  - Oedema peripheral [Unknown]
  - Tendon discomfort [Recovering/Resolving]
  - Joint swelling [Not Recovered/Not Resolved]
  - Pelvic pain [Unknown]
  - Pain [Recovering/Resolving]
  - Haematospermia [Unknown]
  - Nocturia [Recovering/Resolving]
  - Tendonitis [Recovering/Resolving]
  - Arthritis [Unknown]
  - Diarrhoea [Recovered/Resolved]
  - Rotator cuff syndrome [Recovering/Resolving]
  - Joint swelling [Unknown]
  - Myalgia [Unknown]
  - Visual impairment [Not Recovered/Not Resolved]
  - Vision blurred [Not Recovered/Not Resolved]
  - Joint swelling [Recovering/Resolving]
  - Musculoskeletal pain [Unknown]
  - Feeling abnormal [Unknown]
  - Arthralgia [Recovering/Resolving]

NARRATIVE: CASE EVENT DATE: 20180428
